FAERS Safety Report 18327729 (Version 1)
Quarter: 2020Q3

REPORT INFORMATION
  Report Type: Spontaneous
  Country: US (occurrence: US)
  Receive Date: 20200930
  Receipt Date: 20200930
  Transmission Date: 20201103
  Serious: No
  Sender: FDA-Public Use
  Company Number: US-STRIDES ARCOLAB LIMITED-2020SP009652

PATIENT
  Age: 74 Year
  Sex: Female

DRUGS (4)
  1. LIDOCAINE. [Suspect]
     Active Substance: LIDOCAINE
     Indication: PRURITUS
     Dosage: UNK
     Route: 061
  2. AMITRIPTYLINE [Suspect]
     Active Substance: AMITRIPTYLINE
     Indication: PRURITUS
     Dosage: UNK
     Route: 061
  3. KETAMINE [Suspect]
     Active Substance: KETAMINE
     Indication: PRURITUS
     Dosage: UNK
     Route: 061
  4. GABAPENTIN. [Suspect]
     Active Substance: GABAPENTIN
     Indication: PRURITUS
     Dosage: 1800 MILLIGRAM PER DAY
     Route: 065

REACTIONS (1)
  - Treatment failure [Unknown]
